FAERS Safety Report 22372716 (Version 1)
Quarter: 2023Q2

REPORT INFORMATION
  Report Type: Spontaneous
  Country: IT (occurrence: IT)
  Receive Date: 20230526
  Receipt Date: 20230526
  Transmission Date: 20230722
  Serious: Yes (Other)
  Sender: FDA-Public Use
  Company Number: IT-AMERICAN REGENT INC-2023001267

PATIENT
  Age: 65 Year
  Sex: Male

DRUGS (2)
  1. FERINJECT [Suspect]
     Active Substance: FERRIC CARBOXYMALTOSE
     Indication: Iron deficiency
     Dosage: 500 MILLIGRAM
     Route: 042
  2. FERINJECT [Suspect]
     Active Substance: FERRIC CARBOXYMALTOSE
     Dosage: 500 MILLIGRAM
     Route: 042
     Dates: start: 2023, end: 2023

REACTIONS (4)
  - Oxygen saturation decreased [Recovered/Resolved]
  - Hyperhidrosis [Recovered/Resolved]
  - Dysphonia [Recovered/Resolved]
  - Chest pain [Recovered/Resolved]

NARRATIVE: CASE EVENT DATE: 20230413
